FAERS Safety Report 5146316-5 (Version None)
Quarter: 2006Q4

REPORT INFORMATION
  Report Type: 
  Country: None (occurrence: None)
  Receive Date: 20061102
  Receipt Date: 20061019
  Transmission Date: 20070319
  Serious: Yes (Death)
  Sender: FDA-Public Use
  Company Number: 2006110102

PATIENT
  Age: 35 Year
  Sex: Female

DRUGS (13)
  1. CLINDAMYCIN PHOSPHATE [Suspect]
     Indication: WOUND INFECTION
     Dosage: 1200 MG (600 MG, 2 IN 1 D), INTRAVENOUS
     Route: 042
     Dates: start: 20060818, end: 20060819
  2. DIAZEPAM [Concomitant]
  3. HALOPERIDOL [Concomitant]
  4. AUGMENTIN '125' [Concomitant]
  5. METROGYL (METRONIDAZOLE) [Concomitant]
  6. OMNATAX (CEFOTAXIME SODIUM) [Concomitant]
  7. GENTAMICIN SULFATE [Concomitant]
  8. RANTAC (RANITIDINE HYDROCHLORIDE) [Concomitant]
  9. PHENYTOIN [Concomitant]
  10. MEPERIDINE HCL [Concomitant]
  11. ALL OTHER THERAPEUTIC PRODUCTS (ALL OTHER THERAPEUTIC PRODUCTS) [Concomitant]
  12. ALL OTHER THERAPEUTIC PRODUCTS (ALL OTHER THERAPEUTIC PRODUCTS) [Concomitant]
  13. VOVERAN (DICLOFENAC SODIUM) [Concomitant]

REACTIONS (6)
  - AGGRESSION [None]
  - CARDIO-RESPIRATORY ARREST [None]
  - COMPLETED SUICIDE [None]
  - IRRITABILITY [None]
  - LACERATION [None]
  - SUDDEN DEATH [None]
